FAERS Safety Report 22255391 (Version 1)
Quarter: 2023Q2

REPORT INFORMATION
  Report Type: Spontaneous
  Country: GB (occurrence: GB)
  Receive Date: 20230426
  Receipt Date: 20230426
  Transmission Date: 20230722
  Serious: Yes (Other)
  Sender: FDA-Public Use
  Company Number: GB-MHRA-MED-202304170029101040-BFWHV

PATIENT
  Age: 23 Year
  Sex: Female
  Weight: 64 kg

DRUGS (4)
  1. GABAPENTIN [Suspect]
     Active Substance: GABAPENTIN
     Indication: Adverse drug reaction
     Dosage: 3 DOSAGE FORMS DAILY; 300MG , GABAPENTIN 300MG TILLOMED HARD CAPSULES.
     Route: 065
     Dates: start: 20230404, end: 20230410
  2. GABAPENTIN [Suspect]
     Active Substance: GABAPENTIN
     Indication: Fibromyalgia
  3. DEEP HEAT RUB [Concomitant]
     Indication: Product used for unknown indication
  4. IBUPROFEN [Concomitant]
     Active Substance: IBUPROFEN
     Indication: Product used for unknown indication

REACTIONS (2)
  - Dyspnoea [Recovered/Resolved]
  - Chest discomfort [Recovered/Resolved]

NARRATIVE: CASE EVENT DATE: 20230405
